FAERS Safety Report 25838217 (Version 1)
Quarter: 2025Q3

REPORT INFORMATION
  Report Type: Report from Study
  Country: US (occurrence: US)
  Receive Date: 20250923
  Receipt Date: 20250923
  Transmission Date: 20251021
  Serious: Yes (Other)
  Sender: ABBVIE
  Company Number: US-ABBVIE-6395315

PATIENT
  Sex: Female

DRUGS (1)
  1. SKYRIZI [Suspect]
     Active Substance: RISANKIZUMAB-RZAA
     Indication: Crohn^s disease
     Route: 058
     Dates: start: 2023

REACTIONS (8)
  - Hip arthroplasty [Recovering/Resolving]
  - Arthralgia [Unknown]
  - Spinal pain [Unknown]
  - Infection [Unknown]
  - Gait inability [Not Recovered/Not Resolved]
  - Cervical spinal stenosis [Unknown]
  - Bone disorder [Unknown]
  - Crohn^s disease [Not Recovered/Not Resolved]
